FAERS Safety Report 10798758 (Version 2)
Quarter: 2015Q2

REPORT INFORMATION
  Report Type: Report from Study
  Country: JP (occurrence: JP)
  Receive Date: 20150216
  Receipt Date: 20150402
  Transmission Date: 20150821
  Serious: No
  Sender: FDA-Public Use
  Company Number: JP-BRISTOL-MYERS SQUIBB COMPANY-BMS-2015-008279

PATIENT
  Age: 68 Year
  Sex: Male

DRUGS (1)
  1. NIVOLUMAB [Suspect]
     Active Substance: NIVOLUMAB
     Indication: MALIGNANT MELANOMA
     Dosage: 140 MG, UNK
     Route: 065
     Dates: start: 20150126, end: 20150126

REACTIONS (1)
  - Oesophageal ulcer [Recovered/Resolved]

NARRATIVE: CASE EVENT DATE: 20150202
